FAERS Safety Report 7982203-2 (Version None)
Quarter: 2011Q4

REPORT INFORMATION
  Report Type: 
  Country: None (occurrence: None)
  Receive Date: 20111213
  Receipt Date: 20111201
  Transmission Date: 20120403
  Serious: Yes (Hospitalization)
  Sender: FDA-Public Use
  Company Number: TCI2011A06359

PATIENT
  Age: 63 Year
  Sex: Male

DRUGS (11)
  1. CONIEL (BENIDIPINE HYDROCHLORIDE) [Concomitant]
  2. METFORMIN HCL [Concomitant]
  3. CADEMESIN (DOXAZOSIN MESILATE) [Concomitant]
  4. FAMOTIDINE [Concomitant]
  5. TICLOPIDINE HCL [Concomitant]
  6. MICARDIS [Concomitant]
  7. NOVORAPID 30 MIX (INSULIN ASPART) [Concomitant]
  8. ACTOS [Suspect]
     Indication: DIABETES MELLITUS
     Dosage: 15 MG (15 MG, 1 IN 1 D), ORAL
     Route: 048
     Dates: start: 20061101, end: 20111024
  9. ASPIRIN [Concomitant]
  10. NORVASC [Concomitant]
  11. CRESTOR [Concomitant]

REACTIONS (2)
  - BLADDER CANCER [None]
  - BLOOD URINE PRESENT [None]
